FAERS Safety Report 7708730-0 (Version None)
Quarter: 2011Q3

REPORT INFORMATION
  Report Type: 
  Country: None (occurrence: None)
  Receive Date: 20110825
  Receipt Date: 20110825
  Transmission Date: 20111222
  Serious: Yes (Life-Threatening, Other)
  Sender: FDA-Public Use
  Company Number: None

PATIENT
  Age: 32 Year
  Sex: Male
  Weight: 70 kg

DRUGS (1)
  1. PROPECIA [Suspect]
     Indication: ALOPECIA
     Dosage: 1 MG
     Route: 002
     Dates: start: 20110603, end: 20110817

REACTIONS (4)
  - HEADACHE [None]
  - SPEECH DISORDER [None]
  - AMNESIA [None]
  - FATIGUE [None]
